FAERS Safety Report 4840158-3 (Version None)
Quarter: 2005Q4

REPORT INFORMATION
  Report Type: 
  Country: None (occurrence: None)
  Receive Date: 20051125
  Receipt Date: 20051111
  Transmission Date: 20060501
  Serious: Yes (Other)
  Sender: FDA-Public Use
  Company Number: 2005-130623-NL

PATIENT
  Age: 39 Year
  Sex: Female

DRUGS (3)
  1. GANIRELIX ACETATE INJECTION [Suspect]
     Indication: IN VITRO FERTILISATION
     Dosage: 250 UG QD SUBCUTANEOUS, IN TOTAL USED 4 OR 5 DAILY DOSES
     Dates: start: 20050713, end: 20050716
  2. GONAL-F [Concomitant]
  3. REPRONEX [Concomitant]

REACTIONS (2)
  - DRUG HYPERSENSITIVITY [None]
  - INJECTION SITE REACTION [None]
